FAERS Safety Report 4567780-6 (Version None)
Quarter: 2005Q1

REPORT INFORMATION
  Report Type: 
  Country: None (occurrence: None)
  Receive Date: 20050127
  Receipt Date: 20050119
  Transmission Date: 20050727
  Serious: Yes (Hospitalization)
  Sender: FDA-Public Use
  Company Number: 2005017022

PATIENT
  Age: 62 Year
  Sex: Male

DRUGS (14)
  1. SOLU-MEDROL [Suspect]
     Indication: MULTIPLE SCLEROSIS
     Dosage: 1 GRAM (ONCE A DAY FOR 5 DAYS), INTRAVENOUS
     Route: 042
  2. VIAGRA [Suspect]
     Indication: ILL-DEFINED DISORDER
     Dosage: (50 MG), ORAL
     Route: 048
  3. VENLAFAXINE HCL [Concomitant]
  4. EDUCTYL (POTASSIUM BITARTRATE, SODIUM BICARBONATE) [Concomitant]
  5. PAROXETINE HCL [Concomitant]
  6. INTERFERON BETA (INTERFERON BETA) [Concomitant]
  7. GABAPENTIN [Concomitant]
  8. BACLOFEN [Concomitant]
  9. ACETAMINOPHEN [Concomitant]
  10. PYRIDOSTIGMINE BROMIDE (PYRIDOSTIGMINE BROMIDE) [Concomitant]
  11. IBUPROFEN [Concomitant]
  12. MACROGOL (MACROGOL) [Concomitant]
  13. TROSPIUM CHLORIDE (TROSPIUM CHLORIDE) [Concomitant]
  14. TRIMEBUTINE MALEATE (TRIMEBUTINE MALEATE) [Concomitant]

REACTIONS (2)
  - CHEST PAIN [None]
  - MYOCARDIAL INFARCTION [None]
